FAERS Safety Report 4594666-3 (Version None)
Quarter: 2005Q1

REPORT INFORMATION
  Report Type: 
  Country: None (occurrence: None)
  Receive Date: 20050301
  Receipt Date: 20041208
  Transmission Date: 20050727
  Serious: No
  Sender: FDA-Public Use
  Company Number: US-BRISTOL-MYERS SQUIBB COMPANY-12789905

PATIENT
  Sex: Male

DRUGS (2)
  1. ERBITUX [Suspect]
     Indication: COLORECTAL CANCER
     Route: 042
     Dates: start: 20041201, end: 20041201
  2. MEGACE [Concomitant]

REACTIONS (3)
  - FLUSHING [None]
  - HOT FLUSH [None]
  - HYPERHIDROSIS [None]
